FAERS Safety Report 23776880 (Version 2)
Quarter: 2024Q2

REPORT INFORMATION
  Report Type: Spontaneous
  Country: US (occurrence: US)
  Receive Date: 20240424
  Receipt Date: 20240530
  Transmission Date: 20240716
  Serious: Yes (Other)
  Sender: FDA-Public Use
  Company Number: US-MLMSERVICE-20160825-0394815-1

PATIENT
  Age: 11 Year
  Sex: Female

DRUGS (3)
  1. DOCETAXEL [Suspect]
     Active Substance: DOCETAXEL\DOCETAXEL ANHYDROUS
     Indication: Neuroblastoma
     Dosage: UNK, CYCLIC
     Route: 065
  2. SORAFENIB [Suspect]
     Active Substance: SORAFENIB
     Indication: Neuroblastoma
     Dosage: UNK, CYCLIC
     Route: 065
  3. GEMCITABINE [Suspect]
     Active Substance: GEMCITABINE
     Indication: Neuroblastoma
     Dosage: UNK, CYCLIC
     Route: 065

REACTIONS (1)
  - Urinary tract obstruction [Unknown]
